FAERS Safety Report 10261248 (Version 1)
Quarter: 2014Q2

REPORT INFORMATION
  Report Type: Report from Study
  Country: US (occurrence: US)
  Receive Date: 20140626
  Receipt Date: 20140626
  Transmission Date: 20141212
  Serious: Yes (Other)
  Sender: FDA-Public Use
  Company Number: US-ROCHE-1424824

PATIENT
  Sex: Female
  Weight: 44.3 kg

DRUGS (2)
  1. NUTROPIN AQ [Suspect]
     Indication: GROWTH HORMONE DEFICIENCY
     Route: 058
     Dates: end: 20140225
  2. NUTROPIN AQ [Suspect]
     Route: 058
     Dates: start: 20140225

REACTIONS (2)
  - Nystagmus [Unknown]
  - Growth retardation [Unknown]
